FAERS Safety Report 6837391-8 (Version None)
Quarter: 2010Q3

REPORT INFORMATION
  Report Type: 
  Country: None (occurrence: None)
  Receive Date: 20100713
  Receipt Date: 20070512
  Transmission Date: 20110219
  Serious: No
  Sender: FDA-Public Use
  Company Number: US-PFIZER INC-2007038838

PATIENT
  Sex: Male
  Weight: 136.36 kg

DRUGS (7)
  1. CHANTIX [Suspect]
     Indication: SMOKING CESSATION THERAPY
     Dates: start: 20070505
  2. QUINAPRIL [Concomitant]
  3. ISOSORBIDE [Concomitant]
  4. SPIRONOLACTONE [Concomitant]
  5. AMLODIPINE [Concomitant]
  6. METOPROLOL [Concomitant]
  7. FUROSEMIDE [Concomitant]

REACTIONS (4)
  - ANXIETY [None]
  - DISSOCIATION [None]
  - DISTURBANCE IN ATTENTION [None]
  - NAUSEA [None]
